FAERS Safety Report 9968439 (Version 1)
Quarter: 2014Q1

REPORT INFORMATION
  Report Type: Report from Study
  Country: US (occurrence: US)
  Receive Date: 20140306
  Receipt Date: 20140306
  Transmission Date: 20141002
  Serious: No
  Sender: FDA-Public Use
  Company Number: US-ABBVIE-13P-163-1143084-00

PATIENT
  Age: 33 Year
  Sex: Female

DRUGS (18)
  1. HUMIRA [Suspect]
     Indication: CROHN^S DISEASE
     Dates: start: 20130708
  2. ENALAPRIL [Concomitant]
     Indication: HYPERTENSION
  3. GARLIC [Concomitant]
     Indication: CARDIAC DISORDER
  4. FISH OIL [Concomitant]
     Indication: CARDIAC DISORDER
  5. FISH OIL [Concomitant]
     Indication: BLOOD CHOLESTEROL INCREASED
  6. LIALDA [Concomitant]
     Indication: CROHN^S DISEASE
  7. POTASSIUM [Concomitant]
     Indication: CARDIAC DISORDER
     Dosage: 99 MG DAILY
  8. CALCIUM [Concomitant]
     Indication: CROHN^S DISEASE
  9. ASA [Concomitant]
     Indication: CARDIAC DISORDER
  10. PAXIL [Concomitant]
     Indication: DEPRESSION
  11. MVI [Concomitant]
     Indication: CROHN^S DISEASE
     Dosage: DAILY
  12. IRON [Concomitant]
     Indication: ANAEMIA
  13. VITAMIN C [Concomitant]
     Indication: PRODUCT USED FOR UNKNOWN INDICATION
     Dosage: 500 MG DAILY
  14. PROTONIX [Concomitant]
     Indication: GASTROOESOPHAGEAL REFLUX DISEASE
  15. TUMS [Concomitant]
     Indication: GASTROOESOPHAGEAL REFLUX DISEASE
     Dosage: 2 DAILY
  16. GAS X [Concomitant]
     Indication: GASTROOESOPHAGEAL REFLUX DISEASE
     Dosage: DAILY
  17. HYOSCYAMINE [Concomitant]
     Indication: ABDOMINAL PAIN
     Dosage: AS NEEDED
  18. BLACK STRAP MOLASSES [Concomitant]
     Indication: BLOOD IRON

REACTIONS (7)
  - Malaise [Not Recovered/Not Resolved]
  - Movement disorder [Not Recovered/Not Resolved]
  - Asthenia [Not Recovered/Not Resolved]
  - Nausea [Not Recovered/Not Resolved]
  - Vomiting [Not Recovered/Not Resolved]
  - Diarrhoea [Not Recovered/Not Resolved]
  - Feeling abnormal [Not Recovered/Not Resolved]
